FAERS Safety Report 18101680 (Version 1)
Quarter: 2020Q3

REPORT INFORMATION
  Report Type: Report from Study
  Country: US (occurrence: US)
  Receive Date: 20200801
  Receipt Date: 20200801
  Transmission Date: 20201103
  Serious: No
  Sender: FDA-Public Use
  Company Number: NVSC2020US210563

PATIENT
  Sex: Female

DRUGS (2)
  1. COSENTYX [Suspect]
     Active Substance: SECUKINUMAB
     Indication: PSORIATIC ARTHROPATHY
     Dosage: 30 MG, QMO
     Route: 058
     Dates: start: 20151215
  2. COSENTYX [Suspect]
     Active Substance: SECUKINUMAB
     Indication: PSORIASIS

REACTIONS (6)
  - Arthritis [Unknown]
  - Seasonal allergy [Unknown]
  - Arthralgia [Unknown]
  - Migraine [Unknown]
  - Eye disorder [Unknown]
  - Cataract operation complication [Unknown]
